FAERS Safety Report 13243933 (Version 3)
Quarter: 2017Q1

REPORT INFORMATION
  Report Type: Report from Study
  Country: JP (occurrence: JP)
  Receive Date: 20170217
  Receipt Date: 20170331
  Transmission Date: 20170428
  Serious: Yes (Death, Hospitalization)
  Sender: FDA-Public Use
  Company Number: JP-ASTRAZENECA-2016SF37388

PATIENT
  Age: 64 Year
  Sex: Female
  Weight: 41 kg

DRUGS (11)
  1. CALONAL [Concomitant]
     Active Substance: ACETAMINOPHEN
     Route: 048
     Dates: start: 20161210, end: 20161231
  2. NEXIUM [Suspect]
     Active Substance: ESOMEPRAZOLE MAGNESIUM
     Dosage: DOSE UNKNOWN
     Route: 048
     Dates: start: 20161108, end: 20161231
  3. DECADRON [Concomitant]
     Active Substance: DEXAMETHASONE
     Route: 048
     Dates: start: 20161215, end: 20161231
  4. PICOSULFATE NA [Concomitant]
     Dosage: DOSE UNKNOWN (10 DROPS PER TIME BEFORE BEDTIME)
     Route: 048
     Dates: start: 20161226, end: 20161231
  5. SENNOSIDE [Concomitant]
     Active Substance: SENNOSIDES
     Dosage: BEFORE BEDTIME
     Route: 048
     Dates: start: 20161226, end: 20161231
  6. BAKTAR [Concomitant]
     Active Substance: SULFAMETHOXAZOLE\TRIMETHOPRIM
     Dosage: EVERY DAY
     Route: 048
     Dates: start: 20161026, end: 20161231
  7. RISPERIDONE. [Concomitant]
     Active Substance: RISPERIDONE
     Route: 048
     Dates: start: 20161226, end: 20161231
  8. TAGRISSO [Suspect]
     Active Substance: OSIMERTINIB
     Indication: NON-SMALL CELL LUNG CANCER
     Route: 048
     Dates: start: 20161221, end: 20161231
  9. ALENDRONATE [Concomitant]
     Active Substance: ALENDRONATE SODIUM
     Route: 048
  10. MAGNESIUM OXIDE. [Concomitant]
     Active Substance: MAGNESIUM OXIDE
     Route: 048
     Dates: start: 20161226, end: 20161231
  11. OXYCONTIN [Concomitant]
     Active Substance: OXYCODONE HYDROCHLORIDE
     Route: 048
     Dates: start: 20161220, end: 20161231

REACTIONS (3)
  - Ileus [Unknown]
  - Platelet count decreased [Recovered/Resolved]
  - Intestinal perforation [Fatal]

NARRATIVE: CASE EVENT DATE: 20161221
